FAERS Safety Report 9857312 (Version 7)
Quarter: 2017Q3

REPORT INFORMATION
  Report Type: Report from Study
  Country: TW (occurrence: TW)
  Receive Date: 20140130
  Receipt Date: 20170719
  Transmission Date: 20171128
  Serious: Yes (Hospitalization, Other)
  Sender: FDA-Public Use
  Company Number: PHHY2014TW010926

PATIENT
  Age: 52 Year
  Sex: Male
  Weight: 78 kg

DRUGS (8)
  1. ZOMETA [Suspect]
     Active Substance: ZOLEDRONIC ACID
     Dosage: 4 MG, UNK
     Route: 042
     Dates: start: 20110902, end: 20140620
  2. FOLIC ACID. [Concomitant]
     Active Substance: FOLIC ACID
     Indication: ANAEMIA
     Dosage: 5 MG, UNK
     Route: 048
     Dates: start: 20120316
  3. SINOMIN [Concomitant]
     Indication: PROPHYLAXIS
     Dosage: 1 GTT, UNK (QU)
     Route: 065
     Dates: start: 20120316
  4. ZOMETA [Suspect]
     Active Substance: ZOLEDRONIC ACID
     Indication: PLASMA CELL MYELOMA
     Dosage: UNK
     Route: 042
     Dates: start: 201008, end: 201304
  5. PREDONINE [Concomitant]
     Active Substance: PREDNISOLONE
     Indication: PLASMA CELL MYELOMA
     Dosage: 5 MG, PER TAB
     Route: 065
     Dates: start: 20131226, end: 20140107
  6. TINTEN [Concomitant]
     Indication: BACK PAIN
     Dosage: 1000 MG, UNK
     Route: 048
     Dates: start: 20121105, end: 20121118
  7. ROFERON-A 3 [Concomitant]
     Indication: PLASMA CELL MYELOMA
     Dosage: 3 MIU, UNK
     Route: 058
     Dates: start: 20131025, end: 20140122
  8. METHYCOBAL [Concomitant]
     Active Substance: METHYLCOBALAMIN
     Indication: ANAEMIA PROPHYLAXIS
     Dosage: 500 UG, UNK
     Route: 048
     Dates: start: 20120316

REACTIONS (21)
  - Bone pain [Recovered/Resolved]
  - Upper respiratory tract infection [Recovered/Resolved]
  - Productive cough [Recovered/Resolved]
  - Upper respiratory tract infection [Recovered/Resolved]
  - Upper respiratory tract infection [Recovered/Resolved]
  - Cough [Recovered/Resolved]
  - Cough [Recovered/Resolved]
  - Osteonecrosis of jaw [Recovered/Resolved]
  - Upper respiratory tract infection [Recovered/Resolved]
  - Cough [Recovered/Resolved]
  - Exposed bone in jaw [Recovered/Resolved]
  - Decubitus ulcer [Not Recovered/Not Resolved]
  - Upper respiratory tract infection [Recovered/Resolved]
  - Upper respiratory tract infection [Recovered/Resolved]
  - Upper respiratory tract infection [Recovered/Resolved]
  - Insomnia [Recovered/Resolved]
  - Osteomyelitis [Recovered/Resolved]
  - Osteomyelitis [Recovered/Resolved]
  - Rash [Recovered/Resolved]
  - Osteomyelitis [Recovered/Resolved]
  - Rash [Recovered/Resolved]

NARRATIVE: CASE EVENT DATE: 20121001
